FAERS Safety Report 10519551 (Version 2)
Quarter: 2015Q1

REPORT INFORMATION
  Report Type: Spontaneous
  Country: IT (occurrence: IT)
  Receive Date: 20141015
  Receipt Date: 20150116
  Transmission Date: 20150720
  Serious: Yes (Other)
  Sender: FDA-Public Use
  Company Number: IT-SA-2014SA138054

PATIENT
  Age: 84 Year
  Sex: Male

DRUGS (2)
  1. ENAPREN [Suspect]
     Active Substance: ENALAPRIL MALEATE
     Route: 048
     Dates: start: 20140101, end: 20140819
  2. LASIX [Suspect]
     Active Substance: FUROSEMIDE
     Route: 065
     Dates: start: 20140101, end: 20140819

REACTIONS (1)
  - Syncope [Recovering/Resolving]

NARRATIVE: CASE EVENT DATE: 20140819
